FAERS Safety Report 19945382 (Version 1)
Quarter: 2021Q4

REPORT INFORMATION
  Report Type: Spontaneous
  Country: US (occurrence: US)
  Receive Date: 20211012
  Receipt Date: 20211012
  Transmission Date: 20220303
  Serious: Yes (Hospitalization, Other)
  Sender: FDA-Public Use
  Company Number: US-PFIZER INC-202101288084

PATIENT
  Age: 35 Year
  Sex: Male

DRUGS (9)
  1. KETAMINE HYDROCHLORIDE [Suspect]
     Active Substance: KETAMINE HYDROCHLORIDE
     Indication: Post-traumatic stress disorder
     Dosage: UNK
  2. KETAMINE HYDROCHLORIDE [Suspect]
     Active Substance: KETAMINE HYDROCHLORIDE
     Dosage: MONTHLY INTRAVENOUS INFUSIONS
     Route: 042
  3. KETAMINE [Suspect]
     Active Substance: KETAMINE
     Indication: Post-traumatic stress disorder
     Dosage: 100 MG, 4X/DAY
     Route: 048
  4. BUPROPION [Concomitant]
     Active Substance: BUPROPION
     Dosage: 150 MG, DAILY
  5. CANNABIS SATIVA SUBSP. INDICA TOP [Concomitant]
     Active Substance: CANNABIS SATIVA SUBSP. INDICA TOP
     Dosage: VAPE PEN DAILY
  6. CANNABIDIOL [Concomitant]
     Active Substance: CANNABIDIOL
     Dosage: UNK
  7. LORAZEPAM [Concomitant]
     Active Substance: LORAZEPAM
     Indication: Anxiety
     Dosage: 1 MG/DAY AS NEEDED
  8. .DELTA.8-TETRAHYDROCANNABINOL [Concomitant]
     Active Substance: .DELTA.8-TETRAHYDROCANNABINOL
     Dosage: UNK
  9. ZOLPIDEM [Concomitant]
     Active Substance: ZOLPIDEM TARTRATE
     Indication: Sleep disorder
     Dosage: 10 MG H.S. AS NEEDED

REACTIONS (4)
  - Off label use [Unknown]
  - Withdrawal syndrome [Recovered/Resolved]
  - Mental status changes [Recovered/Resolved]
  - Agitation [Recovered/Resolved]
